FAERS Safety Report 7425936-9 (Version None)
Quarter: 2011Q2

REPORT INFORMATION
  Report Type: 
  Country: None (occurrence: None)
  Receive Date: 20110420
  Receipt Date: 20110401
  Transmission Date: 20111010
  Serious: Yes (Death, Other)
  Sender: FDA-Public Use
  Company Number: US-BAYER-200927721NA

PATIENT
  Age: 56 Year
  Sex: Male
  Weight: 97.052 kg

DRUGS (9)
  1. TRASYLOL [Suspect]
     Dosage: 200 ML, ONCE
     Dates: start: 20070723, end: 20070723
  2. ATENOLOL [Concomitant]
     Dosage: 50 MG, QD
     Route: 048
  3. TRASYLOL [Suspect]
     Indication: CORONARY ARTERY BYPASS
     Dosage: 1 ML, ONCE
     Route: 042
     Dates: start: 20070723, end: 20070723
  4. TRASYLOL [Suspect]
     Dosage: 50 ML, Q1HR
     Route: 042
     Dates: start: 20070723, end: 20070723
  5. ZOCOR [Concomitant]
     Dosage: 20 MG, QD
     Route: 048
  6. PLATELETS [Concomitant]
     Dosage: 2 U, UNK
     Dates: start: 20070723
  7. ALTACE [Concomitant]
     Dosage: 5 MG, QD
     Dates: start: 20070703
  8. ANCEF [Concomitant]
     Dosage: 2 G, UNK
     Route: 042
     Dates: start: 20070723
  9. HEPARIN [Concomitant]
     Dosage: 25000 U, UNK
     Route: 042
     Dates: start: 20070723

REACTIONS (14)
  - MULTI-ORGAN FAILURE [None]
  - RENAL FAILURE [None]
  - UNEVALUABLE EVENT [None]
  - DEPRESSION [None]
  - DEATH [None]
  - ANXIETY [None]
  - RENAL INJURY [None]
  - STRESS [None]
  - FEAR [None]
  - RENAL IMPAIRMENT [None]
  - EMOTIONAL DISTRESS [None]
  - PAIN [None]
  - ANHEDONIA [None]
  - INJURY [None]
